FAERS Safety Report 5611595-4 (Version None)
Quarter: 2008Q1

REPORT INFORMATION
  Report Type: 
  Country: None (occurrence: None)
  Receive Date: 20080201
  Receipt Date: 20080124
  Transmission Date: 20080703
  Serious: Yes (Hospitalization)
  Sender: FDA-Public Use
  Company Number: RO-ABBOTT-08P-135-0435042-00

PATIENT
  Age: 23 Year
  Sex: Male

DRUGS (3)
  1. DEPAKENE [Suspect]
     Indication: EPILEPSY
     Route: 048
     Dates: start: 20040101, end: 20060101
  2. DEPAKENE [Suspect]
     Route: 048
     Dates: start: 20060101
  3. TOPIRAMAX [Concomitant]
     Indication: EPILEPSY
     Route: 048
     Dates: start: 20060101

REACTIONS (1)
  - ANAEMIA MEGALOBLASTIC [None]
